FAERS Safety Report 8045020-3 (Version None)
Quarter: 2012Q1

REPORT INFORMATION
  Report Type: 
  Country: None (occurrence: None)
  Receive Date: 20120113
  Receipt Date: 20120109
  Transmission Date: 20120608
  Serious: Yes (Hospitalization, Disabling, Other)
  Sender: FDA-Public Use
  Company Number: PHHY2011FR113502

PATIENT
  Age: 70 Year
  Sex: Female

DRUGS (1)
  1. ZOLEDRONOC ACID [Suspect]
     Indication: OSTEOPOROSIS
     Route: 042
     Dates: start: 20111124

REACTIONS (23)
  - MUSCULOSKELETAL STIFFNESS [None]
  - RENAL PAIN [None]
  - BRONCHIAL DISORDER [None]
  - C-REACTIVE PROTEIN INCREASED [None]
  - NEUTROPHIL COUNT INCREASED [None]
  - THIRST [None]
  - PARALYSIS [None]
  - URINARY INCONTINENCE [None]
  - PYREXIA [None]
  - OEDEMA PERIPHERAL [None]
  - ARTHRALGIA [None]
  - GAIT DISTURBANCE [None]
  - BONE PAIN [None]
  - LUNG DISORDER [None]
  - POLYDIPSIA [None]
  - PAIN [None]
  - PAIN IN EXTREMITY [None]
  - GASTROINTESTINAL DISORDER [None]
  - INCONTINENCE [None]
  - DRUG HYPERSENSITIVITY [None]
  - MALAISE [None]
  - JOINT SWELLING [None]
  - NECK PAIN [None]
